FAERS Safety Report 17009119 (Version 1)
Quarter: 2019Q4

REPORT INFORMATION
  Report Type: Spontaneous
  Country: US (occurrence: US)
  Receive Date: 20191108
  Receipt Date: 20191108
  Transmission Date: 20200122
  Serious: Yes (Other)
  Sender: FDA-Public Use
  Company Number: US-MACLEODS PHARMACEUTICALS US LTD-MAC2019023583

PATIENT

DRUGS (3)
  1. LEVOFLOXACIN. [Suspect]
     Active Substance: LEVOFLOXACIN
     Indication: PROSTATITIS
     Dosage: UNK
     Route: 065
  2. BACTRIM [Suspect]
     Active Substance: SULFAMETHOXAZOLE\TRIMETHOPRIM
     Indication: PROSTATITIS
     Dosage: UNK
     Route: 065
  3. ACITRETIN. [Suspect]
     Active Substance: ACITRETIN
     Indication: ACUTE FEBRILE NEUTROPHILIC DERMATOSIS
     Dosage: UNK
     Route: 065

REACTIONS (3)
  - Acute febrile neutrophilic dermatosis [Recovered/Resolved]
  - Pancreatitis acute [Recovered/Resolved]
  - Diarrhoea [Recovered/Resolved]
